FAERS Safety Report 9336822 (Version 2)
Quarter: 2013Q3

REPORT INFORMATION
  Report Type: Spontaneous
  Country: US (occurrence: US)
  Receive Date: 20130607
  Receipt Date: 20130828
  Transmission Date: 20140515
  Serious: No
  Sender: FDA-Public Use
  Company Number: US-009507513-1306USA000622

PATIENT
  Sex: Female
  Weight: 77.98 kg

DRUGS (4)
  1. ZEGERID OTC CAPSULES [Suspect]
     Indication: GASTROOESOPHAGEAL REFLUX DISEASE
     Dosage: 40 MG, QD
     Route: 048
     Dates: start: 201006
  2. ZEGERID OTC CAPSULES [Suspect]
     Indication: MEDICAL OBSERVATION
  3. CELEXA [Concomitant]
     Indication: ANXIETY
     Dosage: UNK, UNKNOWN
  4. SUDAFED [Concomitant]
     Indication: PRODUCT USED FOR UNKNOWN INDICATION
     Dosage: UNK, UNKNOWN

REACTIONS (2)
  - Overdose [Unknown]
  - Incorrect drug administration duration [Unknown]
